FAERS Safety Report 5810957-X (Version None)
Quarter: 2008Q3

REPORT INFORMATION
  Report Type: 
  Country: None (occurrence: None)
  Receive Date: 20080716
  Receipt Date: 20080708
  Transmission Date: 20090109
  Serious: Yes (Other)
  Sender: FDA-Public Use
  Company Number: PHBS2008AU05018

PATIENT
  Sex: Female

DRUGS (1)
  1. VOLTAREN [Suspect]
     Indication: EXOSTOSIS
     Dosage: 1-2 TBL/DAY
     Route: 048
     Dates: start: 20080705, end: 20080708

REACTIONS (3)
  - EYE PAIN [None]
  - EYE SWELLING [None]
  - VISION BLURRED [None]
